FAERS Safety Report 24310526 (Version 1)
Quarter: 2024Q3

REPORT INFORMATION
  Report Type: Spontaneous
  Country: ES (occurrence: ES)
  Receive Date: 20240912
  Receipt Date: 20240912
  Transmission Date: 20241017
  Serious: Yes (Hospitalization, Other)
  Sender: CELLTRION
  Company Number: ES-CELLTRION INC.-2023ES003187

PATIENT

DRUGS (57)
  1. RITUXIMAB [Suspect]
     Active Substance: RITUXIMAB
     Indication: Follicular lymphoma
     Dosage: DATE OF LAST DOSE PRIOR TO EVENT: 18/JAN/2023 (ADDITIONAL INFORMATION: REGIMEN 1, ACTION TAKEN: DOSE
     Route: 042
     Dates: start: 20220805, end: 20220829
  2. RITUXIMAB [Suspect]
     Active Substance: RITUXIMAB
     Dosage: 375 MG/M2, Q4WEEKS
     Route: 042
     Dates: start: 20220905, end: 20221102
  3. RITUXIMAB [Suspect]
     Active Substance: RITUXIMAB
     Dosage: 375 MG/M2
     Route: 042
     Dates: start: 20230118, end: 20230118
  4. EPCORITAMAB [Suspect]
     Active Substance: EPCORITAMAB
     Indication: Follicular lymphoma
     Dosage: 48 MG, Q4WEEKS (ADDITIONAL INFORMATION: DUOBODY-CD3XCD20 REGIMEN 1; ACTION TAKEN: DOSE DELAYED), FUL
     Route: 058
     Dates: start: 20221004, end: 20221102
  5. EPCORITAMAB [Suspect]
     Active Substance: EPCORITAMAB
     Dosage: 0.16 MG, RE-PRIMING DOSE (RPD1): 0.16 MG; SINGLE
     Route: 058
     Dates: start: 20230118, end: 20230118
  6. EPCORITAMAB [Suspect]
     Active Substance: EPCORITAMAB
     Dosage: 0.16 MG, PRIMING DOSE: 0.16 MG; SINGLE
     Route: 058
     Dates: start: 20220805, end: 20220805
  7. EPCORITAMAB [Suspect]
     Active Substance: EPCORITAMAB
     Dosage: 0.8 MG, INTERMEDIATE DOSE: 0.8 MG; SINGLE
     Route: 058
     Dates: start: 20220812, end: 20220812
  8. EPCORITAMAB [Suspect]
     Active Substance: EPCORITAMAB
     Dosage: 48 MG, 1/WEEK, FULL DOSE: 48 MG; SINGLE
     Route: 058
     Dates: start: 20220819, end: 20220927
  9. LENALIDOMIDE [Suspect]
     Active Substance: LENALIDOMIDE
     Indication: Follicular lymphoma
     Dosage: 15 MG, EVERY 1 DAY (ADDITIONAL INFORMATION: REGIMEN 1 ACTION TAKEN: DOSE DELAYED)
     Route: 048
     Dates: start: 20221004, end: 20221024
  10. LENALIDOMIDE [Suspect]
     Active Substance: LENALIDOMIDE
     Dosage: 15 MG, EVERY 1 DAY
     Route: 048
     Dates: start: 20221102, end: 20221122
  11. LENALIDOMIDE [Suspect]
     Active Substance: LENALIDOMIDE
     Dosage: 20 MG, EVERY 1 DAY
     Route: 048
     Dates: start: 20220805, end: 20220825
  12. LENALIDOMIDE [Suspect]
     Active Substance: LENALIDOMIDE
     Dosage: 10 MG, EVERY 1 DAY
     Route: 048
     Dates: start: 20230118, end: 20230123
  13. LENALIDOMIDE [Suspect]
     Active Substance: LENALIDOMIDE
     Dosage: 15 MG, EVERY 1 DAY
     Route: 048
     Dates: start: 20220905, end: 20220913
  14. TINZAPARIN [Concomitant]
     Active Substance: TINZAPARIN
     Dosage: UNK (ADDITIONAL INFORMATION: ONGOING)
     Dates: start: 20220914
  15. LORAZEPAM [Concomitant]
     Active Substance: LORAZEPAM
     Dosage: UNK (ADDITIONAL INFORMATION: ONGOING)
     Dates: start: 20220912
  16. CHOLECALCIFEROL [Concomitant]
     Active Substance: CHOLECALCIFEROL
     Dosage: UNK (ADDITIONAL INFORMATION: VITAMINE D ONGOING)
  17. SULFAMETHOXAZOLE\TRIMETHOPRIM [Concomitant]
     Active Substance: SULFAMETHOXAZOLE\TRIMETHOPRIM
     Dosage: UNK, ADDITIONAL INFORMATION ON DRUG (FREE TEXT): ONGOING
     Dates: start: 20220715
  18. DEXAMETHASONE [Concomitant]
     Active Substance: DEXAMETHASONE
     Dosage: 20 MG
     Dates: start: 20221102, end: 20221102
  19. COVID-19 CONVALESCENT PLASMA [Concomitant]
     Active Substance: COVID-19 CONVALESCENT PLASMA
     Dosage: UNK
     Dates: start: 20230214, end: 20230214
  20. ACETAMINOPHEN [Concomitant]
     Active Substance: ACETAMINOPHEN
     Dosage: UNK, ADDITIONAL INFORMATION ON DRUG (FREE TEXT): ONGOING
     Dates: start: 20220825
  21. ACETAMINOPHEN [Concomitant]
     Active Substance: ACETAMINOPHEN
     Dosage: 1 G
     Dates: start: 20221102, end: 20221102
  22. ACETAMINOPHEN [Concomitant]
     Active Substance: ACETAMINOPHEN
     Dosage: 1 G (ADDITIONAL INFORMATION: ONGOING)
     Dates: start: 20221102, end: 20230118
  23. ACETAMINOPHEN [Concomitant]
     Active Substance: ACETAMINOPHEN
     Dosage: 1 G
     Dates: start: 20230118, end: 20230118
  24. ACETAMINOPHEN [Concomitant]
     Active Substance: ACETAMINOPHEN
     Dosage: 1 G
     Route: 048
     Dates: start: 20230118, end: 20230118
  25. ACETAMINOPHEN [Concomitant]
     Active Substance: ACETAMINOPHEN
     Dosage: 1 G
     Route: 048
     Dates: start: 20221102, end: 20221102
  26. FUROSEMIDE [Concomitant]
     Active Substance: FUROSEMIDE
     Dosage: UNK
     Dates: start: 20220811
  27. POLARAMINE [Concomitant]
     Active Substance: DEXCHLORPHENIRAMINE MALEATE
     Dosage: 2 MG
  28. POLARAMINE [Concomitant]
     Active Substance: DEXCHLORPHENIRAMINE MALEATE
     Dosage: 5 MG
     Dates: start: 20221102, end: 20230118
  29. POLARAMINE [Concomitant]
     Active Substance: DEXCHLORPHENIRAMINE MALEATE
     Dosage: 2 MG
     Route: 048
     Dates: start: 20230118, end: 20230118
  30. POLARAMINE [Concomitant]
     Active Substance: DEXCHLORPHENIRAMINE MALEATE
     Dosage: 5 MG
     Dates: start: 20221102, end: 20221102
  31. POLARAMINE [Concomitant]
     Active Substance: DEXCHLORPHENIRAMINE MALEATE
     Dosage: 2 MG
     Route: 048
     Dates: start: 20221102, end: 20221102
  32. POLARAMINE [Concomitant]
     Active Substance: DEXCHLORPHENIRAMINE MALEATE
     Dosage: 5 MG
     Dates: start: 20230118, end: 20230118
  33. CALCIUM [Concomitant]
     Active Substance: CALCIUM
     Dosage: UNK (ADDITIONAL INFORMATION: ONGOING)
  34. FAMOTIDINE [Concomitant]
     Active Substance: FAMOTIDINE
     Dosage: UNK (ADDITIONAL INFORMATION: ONGOING)
     Dates: start: 20221130
  35. DESVENLAFAXINE [Concomitant]
     Active Substance: DESVENLAFAXINE
     Dosage: UNK (ADDITIONAL INFORMATION: ONGOING)
     Dates: start: 20220912
  36. CELECREM [Concomitant]
     Dosage: UNK, ADDITIONAL INFORMATION ON DRUG (FREE TEXT): ONGOING
     Dates: start: 20220829
  37. LEUCOVORIN CALCIUM [Concomitant]
     Active Substance: LEUCOVORIN CALCIUM
     Dosage: UNK
     Dates: start: 20220804
  38. ATORVASTATIN [Concomitant]
     Active Substance: ATORVASTATIN
     Dosage: UNK (ADDITIONAL INFORMATION; ONGOING)
  39. ACYCLOVIR [Concomitant]
     Active Substance: ACYCLOVIR
     Dosage: UNK (ADDITIONAL INFORMATION: ONGOING)
     Dates: start: 20220715
  40. PRIMPERAN [Concomitant]
     Active Substance: METOCLOPRAMIDE HYDROCHLORIDE
     Dosage: UNK (ADDITIONAL INFORMATION: ONGOING)
     Dates: start: 20220804, end: 20230221
  41. PREDNISONE [Concomitant]
     Active Substance: PREDNISONE
     Dosage: UNK
     Dates: start: 201907, end: 201912
  42. PREDNISONE [Concomitant]
     Active Substance: PREDNISONE
     Dosage: 100 MG
     Dates: start: 20221102, end: 20230121
  43. PREDNISONE [Concomitant]
     Active Substance: PREDNISONE
     Dosage: UNK (ADDITIONAL INFORMATION: ONGOING)
     Dates: start: 20230215
  44. PREDNISONE [Concomitant]
     Active Substance: PREDNISONE
     Dosage: 100 MG
     Route: 048
     Dates: start: 20230118, end: 20230121
  45. PREDNISONE [Concomitant]
     Active Substance: PREDNISONE
     Dosage: 100 MG
     Route: 048
     Dates: start: 20221102, end: 20221102
  46. REMDESIVIR [Concomitant]
     Active Substance: REMDESIVIR
     Dosage: UNK
     Dates: start: 20230125, end: 20230127
  47. POTASSIUM PHOSPHATE, MONOBASIC [Concomitant]
     Active Substance: POTASSIUM PHOSPHATE, MONOBASIC
  48. AMIKACIN [Concomitant]
     Active Substance: AMIKACIN
  49. METHYLPREDNISOLONE [Concomitant]
     Active Substance: METHYLPREDNISOLONE
  50. ALBUTEROL [Concomitant]
     Active Substance: ALBUTEROL
     Dosage: UNK
     Dates: start: 20230213
  51. SODIUM CHLORIDE [Concomitant]
     Active Substance: SODIUM CHLORIDE
     Dosage: UNK
     Dates: start: 20230124, end: 20230215
  52. IPRATROPIUM BROMIDE [Concomitant]
     Active Substance: IPRATROPIUM BROMIDE\IPRATROPIUM BROMIDE ANHYDROUS
     Dosage: UNK
     Dates: start: 20230213
  53. MEPERIDINE [Concomitant]
     Active Substance: MEPERIDINE
  54. VANCOMYCIN [Concomitant]
     Active Substance: VANCOMYCIN
     Dosage: UNK
     Dates: start: 20230124, end: 20230124
  55. LEUCOVORIN CALCIUM [Concomitant]
     Active Substance: LEUCOVORIN CALCIUM
     Dosage: ADDITIONAL INFORMATION ON DRUG (FREE TEXT): ONGOING
     Dates: start: 20220804
  56. COVID-19 VACCINE [Concomitant]
     Dosage: DDITIONAL INFORMATION ON DRUG (FREE TEXT): ONGOING
     Dates: start: 202106
  57. DEXAMETHASONE [Concomitant]
     Active Substance: DEXAMETHASONE
     Dosage: 20 MG
     Dates: start: 20230118, end: 20230118

REACTIONS (4)
  - Organising pneumonia [Not Recovered/Not Resolved]
  - Pneumonia [Recovered/Resolved]
  - COVID-19 [Not Recovered/Not Resolved]
  - Herpes simplex [Unknown]

NARRATIVE: CASE EVENT DATE: 20230123
